FAERS Safety Report 5152345-8 (Version None)
Quarter: 2006Q4

REPORT INFORMATION
  Report Type: 
  Country: None (occurrence: None)
  Receive Date: 20061116
  Receipt Date: 20061113
  Transmission Date: 20070319
  Serious: Yes (Other)
  Sender: FDA-Public Use
  Company Number: US-SANOFI-SYNTHELABO-A03200606827

PATIENT
  Sex: Male

DRUGS (3)
  1. EFFEXOR XR [Concomitant]
     Dosage: UNK
     Route: 048
  2. AMBIEN [Suspect]
     Indication: INSOMNIA
     Route: 048
  3. TRAZODONE HCL [Concomitant]
     Dosage: UNK
     Route: 048

REACTIONS (4)
  - DISORIENTATION [None]
  - IMPAIRED DRIVING ABILITY [None]
  - LEGAL PROBLEM [None]
  - POISONING [None]
